FAERS Safety Report 10917737 (Version 1)
Quarter: 2015Q1

REPORT INFORMATION
  Report Type: Spontaneous
  Country: US (occurrence: US)
  Receive Date: 20150316
  Receipt Date: 20150316
  Transmission Date: 20150721
  Serious: No
  Sender: FDA-Public Use
  Company Number: US-GLAXOSMITHKLINE-US2015GSK015321

PATIENT
  Sex: Male
  Weight: 88.44 kg

DRUGS (6)
  1. VOTRIENT [Suspect]
     Active Substance: PAZOPANIB HYDROCHLORIDE
     Indication: RENAL CANCER
     Dosage: 800 MG, QD
     Route: 048
     Dates: start: 201409
  2. GLIPIZIDE. [Concomitant]
     Active Substance: GLIPIZIDE
  3. FISH OIL [Concomitant]
     Active Substance: FISH OIL
  4. AMBIEN [Concomitant]
     Active Substance: ZOLPIDEM TARTRATE
  5. ZITHROMAX [Concomitant]
     Active Substance: AZITHROMYCIN DIHYDRATE
  6. LASIX [Concomitant]
     Active Substance: FUROSEMIDE

REACTIONS (5)
  - Epistaxis [Unknown]
  - Abdominal pain [Unknown]
  - Onychoclasis [Unknown]
  - Diarrhoea [Unknown]
  - Vision blurred [Unknown]
